FAERS Safety Report 6215011-3 (Version None)
Quarter: 2009Q2

REPORT INFORMATION
  Report Type: 
  Country: None (occurrence: None)
  Receive Date: 20090604
  Receipt Date: 20080731
  Transmission Date: 20091009
  Serious: No
  Sender: FDA-Public Use
  Company Number: US-ASTRAZENECA-2008UW15853

PATIENT
  Sex: Female

DRUGS (3)
  1. PRILOSEC [Suspect]
  2. SEROQUEL [Suspect]
  3. TYLENOL W/ CODEINE NO. 3 [Suspect]

REACTIONS (1)
  - DRUG INTERACTION [None]
